FAERS Safety Report 16360628 (Version 1)
Quarter: 2019Q2

REPORT INFORMATION
  Report Type: Spontaneous
  Country: FR (occurrence: FR)
  Receive Date: 20190528
  Receipt Date: 20190528
  Transmission Date: 20190711
  Serious: Yes (Other)
  Sender: FDA-Public Use
  Company Number: FR-SA-2019SA143078

PATIENT
  Age: 26 Year
  Sex: Female
  Weight: 42 kg

DRUGS (13)
  1. ZYMAD [Concomitant]
     Active Substance: CHOLECALCIFEROL
     Indication: VITAMIN D DEFICIENCY
     Dosage: 80000 IU, QOW
     Route: 048
     Dates: start: 20190116, end: 20190213
  2. RIFADINE [Suspect]
     Active Substance: RIFAMPIN
     Indication: PULMONARY TUBERCULOSIS
     Dosage: 500 MG, QD
     Route: 042
     Dates: start: 20190205, end: 20190222
  3. MYAMBUTOL [Suspect]
     Active Substance: ETHAMBUTOL HYDROCHLORIDE
     Indication: PULMONARY TUBERCULOSIS
     Dosage: 1 DF, QD
     Route: 042
     Dates: start: 20190205, end: 20190222
  4. PRINCI B [CYANOCOBALAMIN;PYRIDOXINE HYDROCHLORIDE;THIAMINE MONONITRATE [Concomitant]
     Active Substance: CYANOCOBALAMIN\PYRIDOXINE HYDROCHLORIDE\THIAMINE
     Indication: NEUROPATHY PERIPHERAL
     Dosage: 3 DF, QD
     Route: 048
     Dates: start: 20190114, end: 20190311
  5. PIRILENE [Suspect]
     Active Substance: PYRAZINAMIDE
     Indication: PULMONARY TUBERCULOSIS
     Dosage: 1250 MG, QD; 2.5-0-0
     Route: 048
     Dates: start: 20190205, end: 20190222
  6. RIFATER [Suspect]
     Active Substance: ISONIAZID\PYRAZINAMIDE\RIFAMPIN
     Dosage: 4 DF, QD
     Route: 048
     Dates: start: 20190223
  7. DIFFU K [Concomitant]
     Active Substance: POTASSIUM CHLORIDE
     Indication: HYPOKALAEMIA
     Dosage: 1200 MG, QD; 1-1-0
     Route: 048
     Dates: start: 20190208, end: 20190211
  8. DOLIPRANE [Concomitant]
     Active Substance: ACETAMINOPHEN
     Indication: PAIN
     Dosage: 1 DF, PRN;IF NECESSARY (MAX8 / DAY)
     Route: 048
     Dates: start: 20190114, end: 20190311
  9. RIFATER [Suspect]
     Active Substance: ISONIAZID\PYRAZINAMIDE\RIFAMPIN
     Indication: PULMONARY TUBERCULOSIS
     Dosage: 4 DF, QD
     Route: 048
     Dates: start: 20190114, end: 20190205
  10. AMIKACIN [AMIKACIN SULFATE] [Concomitant]
     Indication: PULMONARY TUBERCULOSIS
     Dosage: 1950 MG, QW
     Route: 042
     Dates: start: 20190204, end: 20190218
  11. ISONIAZID. [Suspect]
     Active Substance: ISONIAZID
     Indication: PULMONARY TUBERCULOSIS
     Dosage: 1 DF, QD
     Route: 042
     Dates: start: 20190205, end: 20190222
  12. DEXAMBUTOL [Suspect]
     Active Substance: ETHAMBUTOL HYDROCHLORIDE
     Dosage: 1000 MG, QD; 2-0-0
     Route: 048
     Dates: start: 20190223, end: 20190311
  13. DEXAMBUTOL [Suspect]
     Active Substance: ETHAMBUTOL HYDROCHLORIDE
     Indication: PULMONARY TUBERCULOSIS
     Dosage: 1000 MG, QD
     Route: 048
     Dates: start: 20190114, end: 20190205

REACTIONS (1)
  - Optic neuritis [Not Recovered/Not Resolved]

NARRATIVE: CASE EVENT DATE: 20190211
